FAERS Safety Report 10208215 (Version 1)
Quarter: 2014Q2

REPORT INFORMATION
  Report Type: Spontaneous
  Country: US (occurrence: US)
  Receive Date: 20140530
  Receipt Date: 20140530
  Transmission Date: 20141212
  Serious: Yes (Hospitalization)
  Sender: FDA-Public Use
  Company Number: US-NAPPMUNDI-USA-2014-0110764

PATIENT
  Age: 73 Year
  Sex: Female

DRUGS (8)
  1. MS CONTIN TABLETS [Suspect]
     Indication: PAIN
     Dosage: 15 MG, BID
     Route: 048
     Dates: start: 20131119
  2. SUTENT [Suspect]
     Indication: RENAL CELL CARCINOMA
     Dosage: 50 MG, DAILY
     Route: 048
     Dates: start: 20131122, end: 20131212
  3. SUTENT [Suspect]
     Dosage: 50 MG, DAILY
     Route: 048
     Dates: start: 20131216, end: 20131217
  4. SUTENT [Suspect]
     Dosage: 37.5 MG, DAILY
     Route: 048
     Dates: start: 20131231
  5. ROXANOL [Suspect]
     Indication: PRODUCT USED FOR UNKNOWN INDICATION
     Route: 065
  6. SENOKOT [Concomitant]
     Indication: CONSTIPATION
     Dosage: UNK, PRN
     Route: 048
     Dates: start: 20131127
  7. OMEPRAZOLE [Concomitant]
     Indication: PRODUCT USED FOR UNKNOWN INDICATION
     Dosage: UNK
     Route: 065
     Dates: start: 20131203
  8. PROCHLORPERAZINE [Concomitant]
     Indication: NAUSEA
     Dosage: UNK, PRN
     Route: 065
     Dates: start: 20131203

REACTIONS (3)
  - Diarrhoea [Recovering/Resolving]
  - Constipation [Unknown]
  - Glossodynia [Recovering/Resolving]
